FAERS Safety Report 13840387 (Version 2)
Quarter: 2017Q3

REPORT INFORMATION
  Report Type: Spontaneous
  Country: US (occurrence: US)
  Receive Date: 20170807
  Receipt Date: 20170824
  Transmission Date: 20171127
  Serious: No
  Sender: FDA-Public Use
  Company Number: US-009507513-1708USA000007

PATIENT
  Age: 13 Year
  Sex: Male

DRUGS (3)
  1. CARVEDILOL. [Concomitant]
     Active Substance: CARVEDILOL
  2. PRINIVIL [Suspect]
     Active Substance: LISINOPRIL
     Route: 048
  3. FUROSEMIDE. [Suspect]
     Active Substance: FUROSEMIDE
     Indication: OEDEMA

REACTIONS (5)
  - Ejection fraction decreased [Unknown]
  - Dilatation atrial [Unknown]
  - Diastolic dysfunction [Unknown]
  - Left ventricular dilatation [Unknown]
  - Drug ineffective [Unknown]
